FAERS Safety Report 10359469 (Version 3)
Quarter: 2014Q4

REPORT INFORMATION
  Report Type: Spontaneous
  Country: CH (occurrence: CH)
  Receive Date: 20140804
  Receipt Date: 20141031
  Transmission Date: 20150528
  Serious: Yes (Other)
  Sender: FDA-Public Use
  Company Number: CH-JNJFOC-20140703308

PATIENT
  Sex: Female

DRUGS (2)
  1. RISPERDAL CONSTA [Suspect]
     Active Substance: RISPERIDONE
     Indication: SCHIZOAFFECTIVE DISORDER
     Route: 030
     Dates: start: 2005, end: 2011
  2. XENICAL [Suspect]
     Active Substance: ORLISTAT
     Indication: WEIGHT INCREASED
     Route: 065

REACTIONS (10)
  - Skin atrophy [Unknown]
  - Muscle spasms [Unknown]
  - Cellulitis [Unknown]
  - Suicidal ideation [Unknown]
  - Acne [Unknown]
  - Alopecia [Unknown]
  - Skin injury [Unknown]
  - Weight increased [Unknown]
  - Depression [Unknown]
  - Crying [Unknown]
